FAERS Safety Report 24533721 (Version 4)
Quarter: 2025Q2

REPORT INFORMATION
  Report Type: Spontaneous
  Country: FR (occurrence: FR)
  Receive Date: 20241022
  Receipt Date: 20250411
  Transmission Date: 20250717
  Serious: Yes (Hospitalization, Other)
  Sender: MYLAN
  Company Number: FR-SA-SAC20221228000269

PATIENT
  Age: 53 Year
  Sex: Female

DRUGS (29)
  1. ACETAMINOPHEN [Suspect]
     Active Substance: ACETAMINOPHEN
     Indication: Product used for unknown indication
  2. CYPROTERONE [Suspect]
     Active Substance: CYPROTERONE
     Indication: Product used for unknown indication
  3. CYPROTERONE [Suspect]
     Active Substance: CYPROTERONE
     Dosage: UNK UNK, QD
     Dates: start: 20051115
  4. CYPROTERONE [Suspect]
     Active Substance: CYPROTERONE
  5. CYPROTERONE [Suspect]
     Active Substance: CYPROTERONE
  6. CYPROTERONE [Suspect]
     Active Substance: CYPROTERONE
  7. CYPROTERONE [Suspect]
     Active Substance: CYPROTERONE
  8. CYPROTERONE [Suspect]
     Active Substance: CYPROTERONE
  9. CYPROTERONE [Suspect]
     Active Substance: CYPROTERONE
  10. CYPROTERONE [Suspect]
     Active Substance: CYPROTERONE
  11. CYPROTERONE [Suspect]
     Active Substance: CYPROTERONE
  12. CYPROTERONE [Suspect]
     Active Substance: CYPROTERONE
  13. DOLIPRANE [Suspect]
     Active Substance: ACETAMINOPHEN
     Indication: Product used for unknown indication
  14. ACUPAN [Suspect]
     Active Substance: NEFOPAM HYDROCHLORIDE
     Indication: Product used for unknown indication
     Dosage: UNK, QD
  15. ETHAMSYLATE [Suspect]
     Active Substance: ETHAMSYLATE
     Indication: Product used for unknown indication
  16. BOTULINUM TOXIN NOS [Suspect]
     Active Substance: BOTULINUM TOXIN NOS
     Indication: Neuropathy peripheral
  17. CHLORMADINONE ACETATE [Suspect]
     Active Substance: CHLORMADINONE ACETATE
     Indication: Product used for unknown indication
  18. CHLORMADINONE ACETATE [Suspect]
     Active Substance: CHLORMADINONE ACETATE
  19. CHLORMADINONE ACETATE [Suspect]
     Active Substance: CHLORMADINONE ACETATE
  20. CHLORMADINONE ACETATE [Suspect]
     Active Substance: CHLORMADINONE ACETATE
  21. CHLORMADINONE ACETATE [Suspect]
     Active Substance: CHLORMADINONE ACETATE
  22. Mycoster [Concomitant]
  23. Mycoster [Concomitant]
  24. Algesic [Concomitant]
  25. SMECTA [Concomitant]
     Active Substance: MONTMORILLONITE
  26. ECONAZOLE NITRATE [Concomitant]
     Active Substance: ECONAZOLE NITRATE
  27. CYPROTERONE ACETATE [Concomitant]
     Active Substance: CYPROTERONE ACETATE
  28. Colposeptine [Concomitant]
  29. FENTICONAZOLE NITRATE [Concomitant]
     Active Substance: FENTICONAZOLE NITRATE

REACTIONS (50)
  - Oculogyric crisis [Unknown]
  - Intracranial pressure increased [Unknown]
  - Neuropathy peripheral [Unknown]
  - Ovarioleukodystrophy [Unknown]
  - Pulmonary embolism [Unknown]
  - Embolism [Unknown]
  - Meningioma [Unknown]
  - Trismus [Unknown]
  - Skin hypopigmentation [Unknown]
  - Memory impairment [Unknown]
  - Facial pain [Unknown]
  - Balance disorder [Unknown]
  - Sexual dysfunction [Unknown]
  - Speech disorder [Unknown]
  - Job dissatisfaction [Unknown]
  - Pain [Unknown]
  - Scar [Unknown]
  - Periorbital pain [Unknown]
  - Heavy menstrual bleeding [Unknown]
  - Neuralgia [Unknown]
  - Dyspnoea exertional [Unknown]
  - Abnormal behaviour [Unknown]
  - Eye disorder [Unknown]
  - Skin lesion [Unknown]
  - Eye pain [Unknown]
  - Occipital neuralgia [Unknown]
  - Paraesthesia [Unknown]
  - Dyslexia [Unknown]
  - Disturbance in attention [Unknown]
  - Vertigo [Unknown]
  - Crying [Unknown]
  - Allodynia [Unknown]
  - Temporomandibular pain and dysfunction syndrome [Unknown]
  - Mastication disorder [Unknown]
  - Stress [Unknown]
  - Procedural pain [Unknown]
  - Post procedural complication [Unknown]
  - COVID-19 [Unknown]
  - Toothache [Unknown]
  - Menometrorrhagia [Unknown]
  - Uterine leiomyoma [Unknown]
  - Pain of skin [Unknown]
  - Malaise [Unknown]
  - Intercostal neuralgia [Unknown]
  - Asthenia [Unknown]
  - Headache [Unknown]
  - Dizziness [Unknown]
  - Breast pain [Unknown]
  - Rash erythematous [Unknown]
  - Elschnig^s bodies [Unknown]

NARRATIVE: CASE EVENT DATE: 20151201
